FAERS Safety Report 7484987-9 (Version None)
Quarter: 2011Q2

REPORT INFORMATION
  Report Type: 
  Country: None (occurrence: None)
  Receive Date: 20110517
  Receipt Date: 20110510
  Transmission Date: 20111010
  Serious: Yes (Other)
  Sender: FDA-Public Use
  Company Number: NZ-ROXANE LABORATORIES, INC.-2011-RO-00636RO

PATIENT
  Age: 51 Year
  Sex: Male
  Weight: 65 kg

DRUGS (3)
  1. AZATHIOPRINE [Suspect]
     Dosage: 50 MG
  2. ALLOPURINOL [Suspect]
     Indication: COLITIS ULCERATIVE
     Dosage: 300 MG
  3. AZATHIOPRINE [Suspect]
     Indication: COLITIS ULCERATIVE
     Dosage: 250 MG

REACTIONS (1)
  - APLASIA PURE RED CELL [None]
